FAERS Safety Report 25071591 (Version 2)
Quarter: 2025Q1

REPORT INFORMATION
  Report Type: Report from Study
  Country: US (occurrence: US)
  Receive Date: 20250313
  Receipt Date: 20250315
  Transmission Date: 20250409
  Serious: No
  Sender: BRISTOL-MYERS SQUIBB COMPANY
  Company Number: US-BRISTOL-MYERS SQUIBB COMPANY-2025-037357

PATIENT
  Age: 69 Year
  Sex: Female

DRUGS (1)
  1. ELIQUIS [Suspect]
     Active Substance: APIXABAN
     Indication: Antiphospholipid syndrome
     Dosage: DOSE : 5MG - TWICE A DAY;     FREQ : TWICE A DAY
     Route: 048
     Dates: start: 202412

REACTIONS (4)
  - Dry eye [Unknown]
  - Weight increased [Unknown]
  - Off label use [Unknown]
  - Gastrooesophageal reflux disease [Unknown]

NARRATIVE: CASE EVENT DATE: 20241201
